FAERS Safety Report 15093569 (Version 1)
Quarter: 2018Q2

REPORT INFORMATION
  Report Type: Report from Study
  Country: None (occurrence: PR)
  Receive Date: 20180629
  Receipt Date: 20180629
  Transmission Date: 20180711
  Serious: Yes (Death, Hospitalization)
  Sender: FDA-Public Use
  Company Number: PR-ABBVIE-18P-131-2353158-00

PATIENT
  Age: 52 Year
  Sex: Male

DRUGS (2)
  1. VENCLEXTA [Suspect]
     Active Substance: VENETOCLAX
     Route: 048
     Dates: start: 201805
  2. VENCLEXTA [Suspect]
     Active Substance: VENETOCLAX
     Indication: ACUTE MYELOID LEUKAEMIA
     Route: 048
     Dates: start: 20180427, end: 201805

REACTIONS (4)
  - Hospitalisation [Unknown]
  - Death [Fatal]
  - Off label use [Unknown]
  - Klebsiella infection [Recovered/Resolved]

NARRATIVE: CASE EVENT DATE: 20180503
